FAERS Safety Report 16786013 (Version 2)
Quarter: 2019Q3

REPORT INFORMATION
  Report Type: Spontaneous
  Country: CH (occurrence: CH)
  Receive Date: 20190909
  Receipt Date: 20190911
  Transmission Date: 20191005
  Serious: Yes (Life-Threatening, Hospitalization, Other)
  Sender: FDA-Public Use
  Company Number: CH-PFIZER INC-2019387880

PATIENT
  Age: 51 Year
  Sex: Female

DRUGS (4)
  1. PANTOZOL [Suspect]
     Active Substance: PANTOPRAZOLE SODIUM
     Indication: PROPHYLAXIS AGAINST GASTROINTESTINAL ULCER
     Dosage: UNK
     Route: 048
     Dates: end: 201907
  2. ARCOXIA [Suspect]
     Active Substance: ETORICOXIB
     Indication: RHEUMATIC DISORDER
     Dosage: 30 MG, UNK
     Route: 048
     Dates: start: 20190720, end: 20190731
  3. ARCOXIA [Suspect]
     Active Substance: ETORICOXIB
     Indication: ARTHRALGIA
     Dosage: 30 MILLIGRAM
     Route: 048
     Dates: start: 2007, end: 201907
  4. PANTOZOL [Suspect]
     Active Substance: PANTOPRAZOLE SODIUM
     Dosage: UNK
     Route: 048
     Dates: start: 20190720, end: 20190731

REACTIONS (2)
  - Toxic epidermal necrolysis [Recovering/Resolving]
  - Hepatic enzyme increased [Recovering/Resolving]

NARRATIVE: CASE EVENT DATE: 20190802
